FAERS Safety Report 16290905 (Version 1)
Quarter: 2019Q2

REPORT INFORMATION
  Report Type: Spontaneous
  Country: PT (occurrence: PT)
  Receive Date: 20190509
  Receipt Date: 20190509
  Transmission Date: 20190711
  Serious: Yes (Death, Hospitalization)
  Sender: FDA-Public Use
  Company Number: PT-PFIZER INC-2019195686

PATIENT
  Age: 65 Year
  Sex: Male

DRUGS (7)
  1. TOPOTECAN HYDROCHLORIDE. [Suspect]
     Active Substance: TOPOTECAN HYDROCHLORIDE
     Indication: SMALL CELL LUNG CANCER
     Dosage: 2.55 MG, CYCLIC (D1 TO 5 EVERY 21/21 DAYS)
     Route: 042
     Dates: start: 20190311, end: 20190316
  2. GLICLAZIDE [Concomitant]
     Active Substance: GLICLAZIDE
     Dosage: 80 MG, 1X/DAY
     Route: 048
  3. ACETYLCYSTEINE. [Concomitant]
     Active Substance: ACETYLCYSTEINE
     Dosage: 600 UNK, UNK
     Route: 048
  4. INSULIN [Concomitant]
     Active Substance: INSULIN NOS
  5. ROSUVASTATIN. [Concomitant]
     Active Substance: ROSUVASTATIN
  6. METFORMIN [Concomitant]
     Active Substance: METFORMIN HYDROCHLORIDE
     Dosage: 2000 MG, 1X/DAY
     Route: 048
  7. TAPENTADOL [Concomitant]
     Active Substance: TAPENTADOL
     Dosage: 100 MG, 1X/DAY
     Route: 048

REACTIONS (1)
  - Pancytopenia [Fatal]

NARRATIVE: CASE EVENT DATE: 20190319
